FAERS Safety Report 6644187-9 (Version None)
Quarter: 2010Q1

REPORT INFORMATION
  Report Type: 
  Country: None (occurrence: None)
  Receive Date: 20100322
  Receipt Date: 20100319
  Transmission Date: 20100710
  Serious: Yes (Death)
  Sender: FDA-Public Use
  Company Number: PHEH2010US03014

PATIENT

DRUGS (1)
  1. METOPIRONE [Suspect]

REACTIONS (1)
  - DEATH [None]
